FAERS Safety Report 12326526 (Version 1)
Quarter: 2016Q2

REPORT INFORMATION
  Report Type: Spontaneous
  Country: US (occurrence: None)
  Receive Date: 20160502
  Receipt Date: 20160502
  Transmission Date: 20160815
  Serious: Yes (Other)
  Sender: FDA-Public Use
  Company Number: None

PATIENT
  Age: 26 Year
  Sex: Female
  Weight: 77.57 kg

DRUGS (4)
  1. NASACORT [Concomitant]
     Active Substance: TRIAMCINOLONE ACETONIDE
  2. MELOXICAM 15MG TABLET, 15 MG CIPLLA USA, INC. [Suspect]
     Active Substance: MELOXICAM
     Indication: NECK PAIN
     Route: 048
     Dates: start: 20160426, end: 20160428
  3. MELOXICAM 15MG TABLET, 15 MG CIPLLA USA, INC. [Suspect]
     Active Substance: MELOXICAM
     Indication: BACK PAIN
     Route: 048
     Dates: start: 20160426, end: 20160428
  4. CLARITIN [Concomitant]
     Active Substance: LORATADINE

REACTIONS (4)
  - Feeling of body temperature change [None]
  - Paraesthesia [None]
  - Anxiety [None]
  - Hypoaesthesia [None]

NARRATIVE: CASE EVENT DATE: 20160426
